FAERS Safety Report 15580055 (Version 2)
Quarter: 2018Q4

REPORT INFORMATION
  Report Type: Spontaneous
  Country: BE (occurrence: BE)
  Receive Date: 20181102
  Receipt Date: 20181206
  Transmission Date: 20190205
  Serious: Yes (Hospitalization)
  Sender: FDA-Public Use
  Company Number: BE-JNJFOC-20181044061

PATIENT
  Age: 88 Year
  Sex: Female
  Weight: 62.5 kg

DRUGS (7)
  1. EMCORETIC [Concomitant]
     Active Substance: BISOPROLOL FUMARATE\HYDROCHLOROTHIAZIDE
     Indication: HYPERTENSION
     Route: 048
     Dates: start: 20170602
  2. DEXPANTHENOL. [Concomitant]
     Active Substance: DEXPANTHENOL
     Indication: OESOPHAGITIS
     Route: 048
     Dates: start: 20180704
  3. CORDARONE [Concomitant]
     Active Substance: AMIODARONE HYDROCHLORIDE
     Indication: ATRIAL FIBRILLATION
     Route: 048
     Dates: start: 20130930
  4. DEXPANTHENOL. [Concomitant]
     Active Substance: DEXPANTHENOL
     Indication: OESOPHAGITIS
     Route: 048
     Dates: start: 20180704
  5. L-THYROXINE                        /00068001/ [Concomitant]
     Active Substance: LEVOTHYROXINE
     Indication: HYPOTHYROIDISM
     Route: 048
     Dates: start: 20140829
  6. LIPITOR [Concomitant]
     Active Substance: ATORVASTATIN CALCIUM
     Indication: THROMBOSIS PROPHYLAXIS
     Route: 048
     Dates: start: 20171217
  7. XARELTO [Suspect]
     Active Substance: RIVAROXABAN
     Indication: THROMBOSIS PROPHYLAXIS
     Route: 048
     Dates: start: 20180704

REACTIONS (4)
  - Wound infection [Recovering/Resolving]
  - Haematoma [Recovering/Resolving]
  - Fall [Recovering/Resolving]
  - Muscle necrosis [Recovering/Resolving]

NARRATIVE: CASE EVENT DATE: 20180831
